FAERS Safety Report 7692332-9 (Version None)
Quarter: 2011Q3

REPORT INFORMATION
  Report Type: 
  Country: None (occurrence: None)
  Receive Date: 20110818
  Receipt Date: 20110803
  Transmission Date: 20111222
  Serious: Yes (Other)
  Sender: FDA-Public Use
  Company Number: US-BAYER-2011-070229

PATIENT
  Sex: Female

DRUGS (5)
  1. LITHIUM [Concomitant]
  2. ALEVE (CAPLET) [Suspect]
  3. ALIGN [Concomitant]
  4. BACLOFEN [Concomitant]
  5. TRAMADOL HCL [Concomitant]

REACTIONS (4)
  - DEPRESSION [None]
  - SUICIDAL IDEATION [None]
  - CYST [None]
  - CONSTIPATION [None]
